FAERS Safety Report 8802980 (Version 4)
Quarter: 2012Q4

REPORT INFORMATION
  Report Type: 
  Country: FR (occurrence: FR)
  Receive Date: 20120924
  Receipt Date: 20121127
  Transmission Date: 20130627
  Serious: Yes (Life-Threatening, Hospitalization)
  Sender: FDA-Public Use
  Company Number: FR-PFIZER INC-2012229385

PATIENT
  Age: 57 Year
  Sex: Male

DRUGS (16)
  1. VFEND [Suspect]
     Indication: ASPERGILLOSIS
     Dosage: UNK
     Route: 048
     Dates: end: 20120504
  2. ATARAX [Suspect]
     Indication: ANXIETY
     Dosage: UNK
     Route: 048
     Dates: end: 20120504
  3. TRIATEC [Suspect]
     Indication: MYOCARDIAL INFARCT PROPHYLAXIS
     Dosage: 5 mg, daily
     Route: 048
     Dates: end: 20121104
  4. TAVANIC [Suspect]
     Indication: LUNG INFECTION
     Dosage: UNK
     Route: 048
     Dates: end: 20120506
  5. RANIPLEX [Suspect]
     Dosage: UNK
     Route: 048
     Dates: end: 20120504
  6. ENTOCORT [Suspect]
     Indication: CROHN^S DISEASE
     Dosage: 3 mg, 3x/day
     Route: 048
     Dates: end: 20120504
  7. SPECIAFOLDINE [Suspect]
     Indication: ANEMIA
     Dosage: 5 mg, daily
     Route: 048
     Dates: end: 20120504
  8. RIVOTRIL [Suspect]
     Indication: EPILEPSY
     Dosage: UNK
     Route: 048
     Dates: end: 20120504
  9. ZELITREX [Concomitant]
     Indication: ANTIVIRAL PROPHYLAXIS
     Dosage: 500 mg, 2x/day
     Route: 048
  10. INEXIUM [Concomitant]
     Indication: GASTROOESOPHAGEAL REFLUX
     Dosage: 40 mg, 2x/day
     Route: 048
  11. CORTANCYL [Concomitant]
     Indication: CHRONIC GRAFT VERSUS HOST DISEASE IN SKIN
     Dosage: 40 mg, Daily
     Route: 048
     Dates: end: 20120504
  12. NOXAFIL [Concomitant]
     Indication: ASPERGILLOSIS
     Dosage: 200 mg, 3x/day
     Route: 048
     Dates: start: 20120504
  13. BACTRIM FORTE [Concomitant]
     Indication: LUNG INFECTION
     Dosage: 1 DF, 3 times per week
     Route: 048
  14. CARDENSIEL [Concomitant]
     Indication: INSUFFICIENCY CARDIAC
     Dosage: 2.5 mg, Daily
     Route: 048
  15. CARDENSIEL [Concomitant]
     Dosage: 2.5 mg, 1x/day
  16. SOLU-MEDROL [Concomitant]
     Indication: CHRONIC GRAFT VERSUS HOST DISEASE IN SKIN
     Dosage: 40 mg/2ml, Daily
     Route: 042
     Dates: start: 20120504, end: 20120524

REACTIONS (4)
  - Thrombotic microangiopathy [Recovered/Resolved]
  - Epilepsy [Recovered/Resolved]
  - General physical health deterioration [Recovered/Resolved]
  - Nervous system disorder [Recovered/Resolved]
